FAERS Safety Report 4519340-0 (Version None)
Quarter: 2004Q4

REPORT INFORMATION
  Report Type: 
  Country: None (occurrence: None)
  Receive Date: 20041201
  Receipt Date: 20041117
  Transmission Date: 20050328
  Serious: Yes (Hospitalization, Other)
  Sender: FDA-Public Use
  Company Number: 240493

PATIENT
  Age: 37 Year
  Sex: Male
  Weight: 80 kg

DRUGS (4)
  1. NOVORAPID CHU          (INSULIN ASPART) [Suspect]
     Indication: DIABETES MELLITUS
     Dosage: 24IU, QD
     Dates: start: 20041105, end: 20041111
  2. HUMULIN R [Concomitant]
  3. SOLITA (ELECTROLYTES NOS) [Concomitant]
  4. ISOTONIC SOLUTIONS [Concomitant]

REACTIONS (6)
  - ALANINE AMINOTRANSFERASE INCREASED [None]
  - ASPARTATE AMINOTRANSFERASE INCREASED [None]
  - DIABETIC KETOACIDOSIS [None]
  - HEPATIC FUNCTION ABNORMAL [None]
  - MALAISE [None]
  - RHABDOMYOLYSIS [None]
